FAERS Safety Report 8076258-7 (Version None)
Quarter: 2012Q1

REPORT INFORMATION
  Report Type: 
  Country: None (occurrence: None)
  Receive Date: 20120127
  Receipt Date: 20120116
  Transmission Date: 20120608
  Serious: Yes (Death)
  Sender: FDA-Public Use
  Company Number: KH-ROCHE-1031234

PATIENT
  Sex: Female
  Weight: 15 kg

DRUGS (10)
  1. DIGOXIN [Concomitant]
     Dates: start: 20110203, end: 20110203
  2. BECOZYME [Concomitant]
     Dates: start: 20110203, end: 20110203
  3. ROCEPHIN [Suspect]
     Indication: PRODUCT USED FOR UNKNOWN INDICATION
     Dates: start: 20110203, end: 20110203
  4. ACETAMINOPHEN [Concomitant]
     Dates: start: 20110203, end: 20110203
  5. GENTAMICIN [Concomitant]
     Dates: start: 20110203, end: 20110203
  6. ADRENALIN IN OIL INJ [Concomitant]
     Dates: start: 20110203, end: 20110203
  7. ZINACEF [Concomitant]
     Dates: start: 20110203, end: 20110203
  8. LASIX [Concomitant]
     Dates: start: 20110203, end: 20110203
  9. RIFATER [Concomitant]
     Dates: start: 20110203, end: 20110203
  10. HYDROCORTISONE [Concomitant]
     Dates: start: 20110203, end: 20110203

REACTIONS (2)
  - MULTI-ORGAN FAILURE [None]
  - ACUTE RESPIRATORY DISTRESS SYNDROME [None]
